FAERS Safety Report 5942633-7 (Version None)
Quarter: 2008Q4

REPORT INFORMATION
  Report Type: 
  Country: None (occurrence: None)
  Receive Date: 20081103
  Receipt Date: 20081022
  Transmission Date: 20090506
  Serious: Yes (Other)
  Sender: FDA-Public Use
  Company Number: 8029551

PATIENT
  Age: 20 Year
  Sex: Female

DRUGS (3)
  1. KEPPRA [Suspect]
     Indication: EPILEPSY
     Dosage: 500 MG 2/D PO
     Route: 048
     Dates: start: 20071001
  2. KEPPRA [Suspect]
     Indication: EPILEPSY
     Dosage: 1500 MG 1/D PO
     Route: 048
     Dates: start: 20080101
  3. ERGENYL CHRONO [Suspect]
     Indication: EPILEPSY
     Dosage: 1250 MG /D PO; A FEW YEARS
     Route: 048

REACTIONS (2)
  - DRUG EXPOSURE DURING PREGNANCY [None]
  - UNINTENDED PREGNANCY [None]
